FAERS Safety Report 5962475-6 (Version None)
Quarter: 2008Q4

REPORT INFORMATION
  Report Type: 
  Country: None (occurrence: None)
  Receive Date: 20081121
  Receipt Date: 20081111
  Transmission Date: 20090506
  Serious: Yes (Hospitalization)
  Sender: FDA-Public Use
  Company Number: JP-PFIZER INC-2008079221

PATIENT
  Sex: Female

DRUGS (3)
  1. LIPITOR [Suspect]
     Indication: HYPERCHOLESTEROLAEMIA
     Route: 048
     Dates: end: 20080909
  2. LIPITOR [Suspect]
     Indication: HYPERLIPIDAEMIA
  3. BLOPRESS [Concomitant]
     Dates: end: 20080909

REACTIONS (1)
  - HYPEREOSINOPHILIC SYNDROME [None]
